FAERS Safety Report 6028137-4 (Version None)
Quarter: 2009Q1

REPORT INFORMATION
  Report Type: 
  Country: None (occurrence: None)
  Receive Date: 20090105
  Receipt Date: 20090105
  Transmission Date: 20090719
  Serious: No
  Sender: FDA-Public Use
  Company Number: None

PATIENT
  Age: 39 Year
  Sex: Male

DRUGS (1)
  1. CHANTIX [Suspect]
     Dates: start: 20081209

REACTIONS (2)
  - NAUSEA [None]
  - VOMITING [None]
